FAERS Safety Report 4796047-6 (Version None)
Quarter: 2005Q3

REPORT INFORMATION
  Report Type: 
  Country: None (occurrence: None)
  Receive Date: 20050921
  Receipt Date: 20050306
  Transmission Date: 20060218
  Serious: Yes (Hospitalization)
  Sender: FDA-Public Use
  Company Number: BDI-007007

PATIENT
  Sex: Female

DRUGS (1)
  1. CYSTOGRAFIN [Suspect]
     Indication: CYSTOGRAM

REACTIONS (1)
  - KIDNEY INFECTION [None]
